FAERS Safety Report 17359306 (Version 1)
Quarter: 2020Q1

REPORT INFORMATION
  Report Type: Report from Study
  Country: US (occurrence: US)
  Receive Date: 20200203
  Receipt Date: 20200203
  Transmission Date: 20200409
  Serious: Yes (Hospitalization, Other)
  Sender: FDA-Public Use
  Company Number: US-BRISTOL-MYERS SQUIBB COMPANY-BMS-2020-006820

PATIENT
  Age: 69 Year
  Sex: Male
  Weight: 84.5 kg

DRUGS (5)
  1. 5-FLUOROURACIL [Suspect]
     Active Substance: FLUOROURACIL
     Indication: ADENOCARCINOMA GASTRIC
     Dosage: 250 MILLIGRAM/SQ. METER, QD
     Route: 042
     Dates: start: 20200106
  2. 5-FLUOROURACIL [Suspect]
     Active Substance: FLUOROURACIL
     Indication: PRODUCT USED FOR UNKNOWN INDICATION
     Dosage: 4850 MILLIGRAM
     Route: 042
     Dates: start: 20190916
  3. OXALIPLATIN. [Suspect]
     Active Substance: OXALIPLATIN
     Indication: ADENOCARCINOMA GASTRIC
     Dosage: 170 MILLIGRAM
     Route: 042
     Dates: start: 20190916
  4. IPILIMUMAB [Suspect]
     Active Substance: IPILIMUMAB
     Indication: ADENOCARCINOMA GASTRIC
     Dosage: 82 MILLIGRAM
     Route: 042
     Dates: start: 20191112
  5. NIVOLUMAB [Suspect]
     Active Substance: NIVOLUMAB
     Indication: ADENOCARCINOMA GASTRIC
     Dosage: 240 MILLIGRAM
     Route: 042
     Dates: start: 20191112

REACTIONS (5)
  - Nausea [Unknown]
  - Hyperbilirubinaemia [Unknown]
  - Dehydration [Unknown]
  - Thrombocytopenia [Unknown]
  - Hydronephrosis [Unknown]

NARRATIVE: CASE EVENT DATE: 20200123
